FAERS Safety Report 6088747-5 (Version None)
Quarter: 2009Q1

REPORT INFORMATION
  Report Type: 
  Country: None (occurrence: None)
  Receive Date: 20090218
  Receipt Date: 20090218
  Transmission Date: 20090719
  Serious: Yes (Death)
  Sender: FDA-Public Use
  Company Number: None

PATIENT
  Age: 21 Year
  Sex: Male
  Weight: 79.3795 kg

DRUGS (5)
  1. PAXIL [Suspect]
     Indication: AFFECTIVE DISORDER
     Dosage: 10-20 MG SPORADICALLY PO
     Route: 048
     Dates: start: 20070625, end: 20080221
  2. PAXIL [Suspect]
     Indication: SOCIAL PHOBIA
     Dosage: 10-20 MG SPORADICALLY PO
     Route: 048
     Dates: start: 20070625, end: 20080221
  3. PAXIL [Suspect]
     Indication: AFFECTIVE DISORDER
     Dosage: 10-20 MG SPORADICALLY PO
     Route: 048
     Dates: start: 20080627, end: 20080909
  4. PAXIL [Suspect]
     Indication: SOCIAL PHOBIA
     Dosage: 10-20 MG SPORADICALLY PO
     Route: 048
     Dates: start: 20080627, end: 20080909
  5. KLONOPIN [Concomitant]

REACTIONS (1)
  - COMPLETED SUICIDE [None]
